FAERS Safety Report 8604445 (Version 4)
Quarter: 2014Q1

REPORT INFORMATION
  Report Type: Spontaneous
  Country: US (occurrence: US)
  Receive Date: 20120608
  Receipt Date: 20140331
  Transmission Date: 20141002
  Serious: Yes (Other)
  Sender: FDA-Public Use
  Company Number: US-PFIZER INC-2012135945

PATIENT
  Age: 64 Year
  Sex: Male
  Weight: 92.97 kg

DRUGS (4)
  1. PROTONIX [Suspect]
     Indication: GASTROOESOPHAGEAL REFLUX DISEASE
     Dosage: 40 MG, 2X/DAY
  2. PROTONIX [Suspect]
     Dosage: 40 MG, 1X/DAY
  3. VIAGRA [Suspect]
     Dosage: UNK
  4. ORENCIA [Concomitant]
     Indication: RHEUMATOID ARTHRITIS
     Dosage: 1000 MG, MONTHLY

REACTIONS (3)
  - Diabetes mellitus [Unknown]
  - Hypertension [Unknown]
  - Drug ineffective [Unknown]
